FAERS Safety Report 8611950 (Version 2)
Quarter: 2012Q4

REPORT INFORMATION
  Report Type: 
  Country: US (occurrence: US)
  Receive Date: 20120613
  Receipt Date: 20120828
  Transmission Date: 20130627
  Serious: Yes (Other)
  Sender: FDA-Public Use
  Company Number: US-BRISTOL-MYERS SQUIBB COMPANY-16660565

PATIENT
  Age: 53 Year
  Sex: Female
  Weight: 98 kg

DRUGS (6)
  1. ABILIFY [Suspect]
     Indication: DEPRESSION
     Dosage: 2 mg for about 2qam
     Route: 048
  2. ABILIFY [Suspect]
     Indication: BIPOLAR DISORDER
     Dosage: 2 mg for about 2qam
     Route: 048
  3. EFFEXOR XR [Suspect]
     Dosage: 3, 75mg caps
  4. NEURONTIN [Suspect]
     Indication: BIPOLAR DISORDER
     Route: 048
  5. PROZAC [Suspect]
     Indication: DEPRESSION
     Route: 048
  6. KLONOPIN [Suspect]
     Indication: ANXIETY
     Route: 048

REACTIONS (6)
  - Cardiac flutter [Recovering/Resolving]
  - Weight increased [Recovering/Resolving]
  - Restlessness [Recovering/Resolving]
  - Tremor [Recovering/Resolving]
  - Akathisia [Recovering/Resolving]
  - Food craving [None]
